FAERS Safety Report 7041538-0 (Version None)
Quarter: 2010Q4

REPORT INFORMATION
  Report Type: 
  Country: None (occurrence: None)
  Receive Date: 20101013
  Receipt Date: 20100622
  Transmission Date: 20110411
  Serious: No
  Sender: FDA-Public Use
  Company Number: US-ASTRAZENECA-2010SE29196

PATIENT
  Age: 42 Year
  Sex: Male
  Weight: 131.5 kg

DRUGS (1)
  1. SYMBICORT [Suspect]
     Indication: ASTHMA
     Dosage: 320MCG TWO TIMES A DAY
     Route: 055

REACTIONS (4)
  - INSOMNIA [None]
  - ORAL CANDIDIASIS [None]
  - RHINORRHOEA [None]
  - VISION BLURRED [None]
